FAERS Safety Report 24072326 (Version 2)
Quarter: 2024Q3

REPORT INFORMATION
  Report Type: Spontaneous
  Country: US (occurrence: US)
  Receive Date: 20240710
  Receipt Date: 20240723
  Transmission Date: 20241017
  Serious: No
  Sender: TEVA
  Company Number: US-TEVA-VS-3217564

PATIENT
  Age: 67 Year
  Sex: Male

DRUGS (1)
  1. AUSTEDO [Suspect]
     Active Substance: DEUTETRABENAZINE
     Indication: Tardive dyskinesia
     Dosage: 2 TABLETS BY MOUTH TWICE DAILY,?TWO 12MG TABLETS - TWICE IN THE MORNING AND TWICE IN THE EVENING ...
     Route: 048

REACTIONS (1)
  - Drug ineffective [Unknown]
